FAERS Safety Report 5714874-5 (Version None)
Quarter: 2008Q2

REPORT INFORMATION
  Report Type: 
  Country: None (occurrence: None)
  Receive Date: 20080423
  Receipt Date: 20070912
  Transmission Date: 20081010
  Serious: Yes (Other)
  Sender: FDA-Public Use
  Company Number: US-BAYER-US-2007-033452

PATIENT
  Age: 67 Year
  Sex: Female
  Weight: 93 kg

DRUGS (8)
  1. LEUKINE [Suspect]
     Indication: NEUTROPENIA
     Route: 058
     Dates: start: 20070530
  2. LUMIGAN [Concomitant]
  3. HYDROCODONE BITARTRATE [Concomitant]
  4. FEXOFENADINE [Concomitant]
  5. ATIVAN [Concomitant]
  6. OXAPROZIN [Concomitant]
  7. COMPAZINE [Concomitant]
  8. ALPRAZOLAM [Concomitant]

REACTIONS (3)
  - BACK PAIN [None]
  - CHEST PAIN [None]
  - SYNCOPE [None]
